FAERS Safety Report 4430638-7 (Version None)
Quarter: 2004Q3

REPORT INFORMATION
  Report Type: 
  Country: None (occurrence: None)
  Receive Date: 20040818
  Receipt Date: 20040803
  Transmission Date: 20050211
  Serious: Yes (Hospitalization)
  Sender: FDA-Public Use
  Company Number: 04P-167-0265726-00

PATIENT
  Sex: Male
  Weight: 76.4 kg

DRUGS (4)
  1. SEVOFLURANE [Suspect]
     Indication: MAINTENANCE OF ANAESTHESIA
     Dosage: 1-8% CONTINUOUS, INHALATION
     Route: 055
     Dates: start: 20040701, end: 20040701
  2. IBUPROFEN SR [Concomitant]
  3. CEFUROXIME [Concomitant]
  4. LEVOBUPIVACAINE [Concomitant]

REACTIONS (6)
  - CYST [None]
  - OPERATIVE HAEMORRHAGE [None]
  - POST PROCEDURAL COMPLICATION [None]
  - POST PROCEDURAL HAEMATOMA [None]
  - PROCEDURAL COMPLICATION [None]
  - SCROTAL SWELLING [None]
